FAERS Safety Report 5207015-4 (Version None)
Quarter: 2007Q1

REPORT INFORMATION
  Report Type: 
  Country: None (occurrence: None)
  Receive Date: 20070112
  Receipt Date: 20070102
  Transmission Date: 20070707
  Serious: Yes (Hospitalization, Other)
  Sender: FDA-Public Use
  Company Number: PHEH2006US14378

PATIENT
  Age: 83 Year
  Sex: Female
  Weight: 74.376 kg

DRUGS (6)
  1. ZOMETA [Suspect]
     Indication: MULTIPLE MYELOMA
     Dosage: 4 MG QMO
     Dates: start: 20020101, end: 20060816
  2. ALKERAN [Concomitant]
     Indication: MULTIPLE MYELOMA
     Dosage: 10MG/M2
     Dates: start: 20020101, end: 20060614
  3. PREDNISONE TAB [Concomitant]
     Indication: MULTIPLE MYELOMA
     Dosage: 60MG/M2
     Dates: start: 20020101, end: 20060501
  4. THALIDOMIDE [Concomitant]
     Indication: MULTIPLE MYELOMA
  5. DECADRON [Concomitant]
     Indication: MULTIPLE MYELOMA
     Dosage: 10MG UNK
     Dates: start: 20061001
  6. VELCADE [Concomitant]
     Indication: MULTIPLE MYELOMA
     Dosage: 1.3 MG/M2
     Dates: start: 20060804

REACTIONS (11)
  - BONE DISORDER [None]
  - CELLULITIS [None]
  - IMPAIRED HEALING [None]
  - MASTICATION DISORDER [None]
  - OSTEOMYELITIS [None]
  - PAIN [None]
  - SOFT TISSUE INFECTION [None]
  - SWELLING [None]
  - TOOTH INFECTION [None]
  - TOOTHACHE [None]
  - WOUND DEBRIDEMENT [None]
